FAERS Safety Report 16497412 (Version 1)
Quarter: 2019Q2

REPORT INFORMATION
  Report Type: Spontaneous
  Country: CN (occurrence: CN)
  Receive Date: 20190628
  Receipt Date: 20190628
  Transmission Date: 20190711
  Serious: Yes (Hospitalization, Other)
  Sender: FDA-Public Use
  Company Number: CN-BAXTER-2019BAX012593

PATIENT
  Age: 16 Year
  Sex: Male
  Weight: 73 kg

DRUGS (4)
  1. HOLOXAN [Suspect]
     Active Substance: IFOSFAMIDE
     Dosage: DOSAGE FORM: INJECTION, IFOSFAMIDE + NS, DOSE RE-INTRODUCED
     Route: 041
  2. 0.9% SODIUM CHLORIDE INJECTION [Suspect]
     Active Substance: SODIUM CHLORIDE
     Indication: MEDICATION DILUTION
     Dosage: IFOSFAMIDE 5.5 GRAM + NS 500 ML
     Route: 041
     Dates: start: 20190415, end: 20190419
  3. 0.9% SODIUM CHLORIDE INJECTION [Suspect]
     Active Substance: SODIUM CHLORIDE
     Dosage: IFOSFAMIDE + NS, DOSE RE-INTRODUCED
     Route: 041
  4. HOLOXAN [Suspect]
     Active Substance: IFOSFAMIDE
     Indication: BONE SARCOMA
     Dosage: DOSAGE FORM: INJECTION, IFOSFAMIDE 5.5 GRAM + NS 500 ML
     Route: 041
     Dates: start: 20190415, end: 20190419

REACTIONS (2)
  - Hyperpyrexia [Recovered/Resolved]
  - Bone marrow failure [Recovering/Resolving]

NARRATIVE: CASE EVENT DATE: 20190424
